FAERS Safety Report 7392370-X (Version None)
Quarter: 2011Q1

REPORT INFORMATION
  Report Type: 
  Country: None (occurrence: None)
  Receive Date: 20110330
  Receipt Date: 20110330
  Transmission Date: 20110831
  Serious: No
  Sender: FDA-Public Use
  Company Number: None

PATIENT
  Age: 55 Year
  Sex: Female

DRUGS (1)
  1. PROPYLTHIOURACIL [Suspect]
     Dates: start: 20090919, end: 20100107

REACTIONS (11)
  - OEDEMA PERIPHERAL [None]
  - MENTAL STATUS CHANGES [None]
  - HEPATOTOXICITY [None]
  - JAUNDICE [None]
  - LIVER INJURY [None]
  - FATIGUE [None]
  - THROMBOCYTOPENIA [None]
  - CARDIAC FAILURE HIGH OUTPUT [None]
  - ASTHENIA [None]
  - VOMITING [None]
  - DIARRHOEA [None]
